FAERS Safety Report 20125661 (Version 6)
Quarter: 2022Q3

REPORT INFORMATION
  Report Type: Spontaneous
  Country: US (occurrence: US)
  Receive Date: 20211129
  Receipt Date: 20220923
  Transmission Date: 20221026
  Serious: No
  Sender: FDA-Public Use
  Company Number: US-PFIZER INC-202100998130

PATIENT
  Age: 69 Year
  Sex: Female
  Weight: 94.35 kg

DRUGS (4)
  1. IBRANCE [Suspect]
     Active Substance: PALBOCICLIB
     Indication: Breast cancer metastatic
     Dosage: (ONE TABLET FOR 21 DAYS)
     Route: 048
     Dates: start: 202011
  2. IBRANCE [Suspect]
     Active Substance: PALBOCICLIB
     Dosage: 100 MG
     Dates: start: 20210314
  3. IBRANCE [Suspect]
     Active Substance: PALBOCICLIB
     Dosage: 100 MG
     Dates: start: 20210412
  4. IBRANCE [Suspect]
     Active Substance: PALBOCICLIB
     Dosage: 75 MG
     Dates: start: 20211012

REACTIONS (16)
  - Diarrhoea [Not Recovered/Not Resolved]
  - Flatulence [Unknown]
  - Blister [Unknown]
  - Gingival bleeding [Unknown]
  - Oral mucosal blistering [Unknown]
  - Nausea [Not Recovered/Not Resolved]
  - Skin exfoliation [Unknown]
  - Neuralgia [Unknown]
  - Fatigue [Unknown]
  - Pain in extremity [Unknown]
  - Vomiting [Unknown]
  - Skin fissures [Unknown]
  - Illness [Unknown]
  - Cognitive disorder [Unknown]
  - Product temperature excursion issue [Unknown]
  - Intentional product misuse [Unknown]

NARRATIVE: CASE EVENT DATE: 20210101
